FAERS Safety Report 25016805 (Version 2)
Quarter: 2025Q2

REPORT INFORMATION
  Report Type: Spontaneous
  Country: US (occurrence: US)
  Receive Date: 20250227
  Receipt Date: 20250630
  Transmission Date: 20250717
  Serious: No
  Sender: UCB
  Company Number: US-UCBSA-2024029474

PATIENT
  Age: 2 Year
  Sex: Male

DRUGS (8)
  1. LEVETIRACETAM [Suspect]
     Active Substance: LEVETIRACETAM
     Indication: Partial seizures
  2. LEVETIRACETAM [Suspect]
     Active Substance: LEVETIRACETAM
     Indication: Central nervous system neuroblastoma
  3. LEVETIRACETAM [Suspect]
     Active Substance: LEVETIRACETAM
     Indication: Off label use
  4. MIDAZOLAM [Suspect]
     Active Substance: MIDAZOLAM
     Indication: Partial seizures
  5. MIDAZOLAM [Suspect]
     Active Substance: MIDAZOLAM
     Indication: Central nervous system neuroblastoma
  6. MIDAZOLAM [Suspect]
     Active Substance: MIDAZOLAM
     Indication: Off label use
  7. LORAZEPAM [Concomitant]
     Active Substance: LORAZEPAM
     Indication: Partial seizures
  8. LORAZEPAM [Concomitant]
     Active Substance: LORAZEPAM
     Indication: Central nervous system neuroblastoma

REACTIONS (1)
  - No adverse event [Unknown]
